FAERS Safety Report 7021652-6 (Version None)
Quarter: 2010Q3

REPORT INFORMATION
  Report Type: 
  Country: None (occurrence: None)
  Receive Date: 20100929
  Receipt Date: 20100922
  Transmission Date: 20110219
  Serious: No
  Sender: FDA-Public Use
  Company Number: CA-AMGEN-QUU429080

PATIENT
  Sex: Female
  Weight: 69.9 kg

DRUGS (4)
  1. ENBREL [Suspect]
     Indication: RHEUMATOID ARTHRITIS
     Route: 058
     Dates: start: 20070816, end: 20100804
  2. METHOTREXATE [Concomitant]
     Route: 048
  3. PLAQUENIL [Concomitant]
     Route: 048
  4. FOLIC ACID [Concomitant]

REACTIONS (1)
  - BREAST CANCER [None]
